FAERS Safety Report 6413738-1 (Version None)
Quarter: 2009Q4

REPORT INFORMATION
  Report Type: 
  Country: None (occurrence: None)
  Receive Date: 20091026
  Receipt Date: 20091016
  Transmission Date: 20100525
  Serious: Yes (Other)
  Sender: FDA-Public Use
  Company Number: GB-ABBOTT-09P-167-0595989-00

PATIENT
  Age: 51 Year
  Sex: Male

DRUGS (5)
  1. NORVIR [Suspect]
     Indication: ANTIRETROVIRAL THERAPY
     Dates: start: 20050623
  2. LAMIVUDINE [Suspect]
     Indication: ANTIRETROVIRAL THERAPY
     Dates: start: 19950829, end: 20060105
  3. FOSAMPRENAVIR CALCIUM [Suspect]
     Indication: ANTIRETROVIRAL THERAPY
     Dates: start: 20050623, end: 20060105
  4. SAQUINAVIR [Suspect]
     Indication: ANTIRETROVIRAL THERAPY
     Dates: start: 20050623
  5. TENOFOVIR DISOPROXIL FUMARATE [Suspect]
     Indication: ANTIRETROVIRAL THERAPY
     Dates: start: 20050623

REACTIONS (3)
  - CONDITION AGGRAVATED [None]
  - HIV INFECTION [None]
  - LIPOATROPHY [None]
